FAERS Safety Report 15105296 (Version 1)
Quarter: 2018Q3

REPORT INFORMATION
  Report Type: Spontaneous
  Country: IT (occurrence: IT)
  Receive Date: 20180704
  Receipt Date: 20180704
  Transmission Date: 20181010
  Serious: Yes (Other)
  Sender: FDA-Public Use
  Company Number: IT-ROCHE-2147630

PATIENT
  Age: 56 Year
  Sex: Male
  Weight: 103 kg

DRUGS (5)
  1. FLUOROURACIL. [Suspect]
     Active Substance: FLUOROURACIL
     Indication: ADENOCARCINOMA OF COLON
     Dosage: DATE OF MOST RECENT DOSE: 01/JUN/2018
     Route: 040
     Dates: start: 20180223
  2. FLUOROURACIL. [Suspect]
     Active Substance: FLUOROURACIL
     Dosage: DATE OF MOST RECENT DOSE: 01/JUN/2018
     Route: 040
     Dates: start: 20180223
  3. LEVOLEUCOVORIN. [Concomitant]
     Active Substance: LEVOLEUCOVORIN
     Indication: ADENOCARCINOMA OF COLON
     Dosage: DATE OF MOST RECENT DOSE: 01/JUN/2018
     Route: 042
     Dates: start: 20180223
  4. AVASTIN [Suspect]
     Active Substance: BEVACIZUMAB
     Indication: ADENOCARCINOMA OF COLON
     Dosage: DATE OF MOST RECENT DOSE: 01/JUN/2018
     Route: 042
     Dates: start: 20180223
  5. OXALIPLATIN. [Suspect]
     Active Substance: OXALIPLATIN
     Indication: ADENOCARCINOMA OF COLON
     Dosage: DATE OF MOST RECENT DOSE: 01/JUN/2018
     Route: 042
     Dates: start: 20180223

REACTIONS (2)
  - Hypertransaminasaemia [Recovering/Resolving]
  - Hyperbilirubinaemia [Recovering/Resolving]

NARRATIVE: CASE EVENT DATE: 20180426
